FAERS Safety Report 11041289 (Version 2)
Quarter: 2015Q2

REPORT INFORMATION
  Report Type: Spontaneous
  Country: US (occurrence: US)
  Receive Date: 20150416
  Receipt Date: 20150525
  Transmission Date: 20150821
  Serious: No
  Sender: FDA-Public Use
  Company Number: US-JNJFOC-20131115023

PATIENT
  Age: 77 Year
  Sex: Female

DRUGS (10)
  1. XARELTO [Suspect]
     Active Substance: RIVAROXABAN
     Indication: ANTICOAGULANT THERAPY
     Route: 048
     Dates: start: 201307
  2. RESTASIS [Suspect]
     Active Substance: CYCLOSPORINE
     Indication: DRY EYE
     Route: 047
     Dates: start: 201303
  3. HUMALOG [Concomitant]
     Active Substance: INSULIN LISPRO
     Indication: DIABETES MELLITUS
  4. BESIVANCE [Concomitant]
     Active Substance: BESIFLOXACIN
     Route: 047
  5. ALTACE [Concomitant]
     Active Substance: RAMIPRIL
     Indication: HYPERTENSION
  6. RESTASIS [Suspect]
     Active Substance: CYCLOSPORINE
     Indication: DRY EYE
     Route: 047
     Dates: end: 2013
  7. LEVEMIR [Concomitant]
     Active Substance: INSULIN DETEMIR
     Indication: DIABETES MELLITUS
  8. RESTASIS [Suspect]
     Active Substance: CYCLOSPORINE
     Indication: DRY EYE
     Route: 047
     Dates: start: 2013
  9. AZASITE [Concomitant]
     Active Substance: AZITHROMYCIN MONOHYDRATE
     Route: 047
  10. LOTEMAX [Concomitant]
     Active Substance: LOTEPREDNOL ETABONATE
     Route: 047

REACTIONS (1)
  - Alopecia [Not Recovered/Not Resolved]

NARRATIVE: CASE EVENT DATE: 201308
